FAERS Safety Report 7842407-6 (Version None)
Quarter: 2011Q4

REPORT INFORMATION
  Report Type: 
  Country: None (occurrence: None)
  Receive Date: 20111025
  Receipt Date: 20111018
  Transmission Date: 20120403
  Serious: Yes (Other)
  Sender: FDA-Public Use
  Company Number: US-JNJFOC-20111009756

PATIENT
  Sex: Female
  Weight: 65.77 kg

DRUGS (11)
  1. DEPLIN [Concomitant]
     Indication: ANXIETY
     Dosage: ONCE A DAY
     Route: 048
     Dates: start: 20110205
  2. TRAZODONE HYDROCHLORIDE [Concomitant]
     Indication: HYPERSOMNIA
     Dosage: ONCE DAILY
     Route: 048
     Dates: start: 20110205
  3. CLONIDINE [Concomitant]
     Indication: FEELING HOT
     Route: 048
     Dates: start: 20110205
  4. PRISTIQ [Concomitant]
     Indication: DEPRESSION
     Dosage: ONCE DAILY
     Route: 048
     Dates: start: 20110205
  5. TRAMADOL HCL [Suspect]
     Indication: PAIN
     Dosage: AS NEEDED
     Route: 048
     Dates: start: 20110205
  6. NUCYNTA [Suspect]
     Indication: PAIN
     Dosage: ONCE EVERY 6 HOURS
     Route: 048
     Dates: start: 20110701
  7. ZYRTEC [Concomitant]
     Indication: MULTIPLE ALLERGIES
     Dosage: ONCE DAILY
     Route: 048
     Dates: start: 20110205
  8. FENTANYL-100 [Suspect]
     Indication: PAIN
     Dosage: 100 UG/HR+50 UG/HR
     Route: 062
     Dates: start: 20040101, end: 20110205
  9. FERROUS SULFATE TAB [Concomitant]
     Indication: BLOOD IRON
     Route: 048
     Dates: start: 20110205
  10. VALIUM [Concomitant]
     Indication: ANXIETY
     Dosage: AS NEEDED
     Route: 048
     Dates: start: 20110205
  11. PREVACID [Concomitant]
     Indication: GASTRIC DISORDER
     Route: 048
     Dates: start: 20110205

REACTIONS (6)
  - CONSTIPATION [None]
  - DRUG INEFFECTIVE [None]
  - DRUG DEPENDENCE [None]
  - SEDATION [None]
  - NASOPHARYNGITIS [None]
  - DRUG EFFECT INCREASED [None]
